FAERS Safety Report 25885825 (Version 1)
Quarter: 2025Q4

REPORT INFORMATION
  Report Type: Other
  Country: CA (occurrence: CA)
  Receive Date: 20251006
  Receipt Date: 20251006
  Transmission Date: 20260117
  Serious: Yes (Hospitalization, Other)
  Sender: INCYTE
  Company Number: CA-002147023-NVSC2025CA152645

PATIENT
  Age: 49 Year

DRUGS (5)
  1. RUXOLITINIB [Suspect]
     Active Substance: RUXOLITINIB
     Indication: Dermatitis atopic
     Dosage: UNK UNK, BID (2 EVERY 1 DAYS)
     Route: 065
  2. BETAMETHASONE DIPROPIONATE\CALCIPOTRIENE [Concomitant]
     Active Substance: BETAMETHASONE DIPROPIONATE\CALCIPOTRIENE
     Indication: Product used for unknown indication
     Dosage: UNK
     Route: 065
  3. CLOBETASOL [Concomitant]
     Active Substance: CLOBETASOL
     Indication: Product used for unknown indication
     Dosage: UNK
     Route: 065
  4. RISANKIZUMAB-RZAA [Concomitant]
     Active Substance: RISANKIZUMAB-RZAA
     Indication: Product used for unknown indication
     Dosage: UNK
     Route: 065
  5. SORIATANE [Concomitant]
     Active Substance: ACITRETIN
     Indication: Product used for unknown indication
     Dosage: UNK
     Route: 065

REACTIONS (7)
  - Decreased immune responsiveness [Recovering/Resolving]
  - Diabetes mellitus [Recovering/Resolving]
  - Fungal infection [Recovering/Resolving]
  - Genital abscess [Recovering/Resolving]
  - Weight decreased [Recovering/Resolving]
  - Herpes virus infection [Recovering/Resolving]
  - Ill-defined disorder [Recovering/Resolving]
